FAERS Safety Report 24629444 (Version 2)
Quarter: 2024Q4

REPORT INFORMATION
  Report Type: Report from Study
  Country: CA (occurrence: CA)
  Receive Date: 20241118
  Receipt Date: 20241224
  Transmission Date: 20250115
  Serious: Yes (Hospitalization)
  Sender: TAKEDA
  Company Number: CA-TAKEDA-2024TUS092673

PATIENT
  Sex: Male

DRUGS (14)
  1. VEDOLIZUMAB [Suspect]
     Active Substance: VEDOLIZUMAB
     Indication: Colitis ulcerative
     Dosage: 300 MILLIGRAM
  2. VEDOLIZUMAB [Suspect]
     Active Substance: VEDOLIZUMAB
     Dosage: 300 MILLIGRAM
  3. VEDOLIZUMAB [Suspect]
     Active Substance: VEDOLIZUMAB
     Dosage: 300 MILLIGRAM
  4. VEDOLIZUMAB [Suspect]
     Active Substance: VEDOLIZUMAB
     Dosage: 300 MILLIGRAM
  5. SULFASALAZINE [Concomitant]
     Active Substance: SULFASALAZINE
     Dosage: UNK
  6. PREDNISONE [Concomitant]
     Active Substance: PREDNISONE
     Dosage: UNK
  7. HYDROMORPHONE [Concomitant]
     Active Substance: HYDROMORPHONE
     Dosage: UNK
  8. SENNOSIDES [Concomitant]
     Active Substance: SENNOSIDES
     Dosage: UNK
  9. SALMETEROL [Concomitant]
     Active Substance: SALMETEROL
     Dosage: UNK
  10. FLUTICASONE PROPIONATE [Concomitant]
     Active Substance: FLUTICASONE PROPIONATE
     Dosage: UNK
  11. ASPIRIN [Concomitant]
     Active Substance: ASPIRIN
     Dosage: UNK
  12. ATORVASTATIN [Concomitant]
     Active Substance: ATORVASTATIN
     Dosage: UNK
  13. CALCIUM CARBONATE [Concomitant]
     Active Substance: CALCIUM CARBONATE
     Dosage: UNK
  14. VITAMIN D3 [Concomitant]
     Active Substance: CHOLECALCIFEROL
     Dosage: UNK

REACTIONS (5)
  - Limb injury [Not Recovered/Not Resolved]
  - Oedema peripheral [Recovered/Resolved]
  - Arthralgia [Unknown]
  - Gait disturbance [Not Recovered/Not Resolved]
  - Cellulitis [Recovered/Resolved]
